FAERS Safety Report 22204797 (Version 2)
Quarter: 2023Q2

REPORT INFORMATION
  Report Type: Spontaneous
  Country: BE (occurrence: BE)
  Receive Date: 20230413
  Receipt Date: 20230421
  Transmission Date: 20230721
  Serious: Yes (Hospitalization)
  Sender: FDA-Public Use
  Company Number: BE-BoehringerIngelheim-2023-BI-230935

PATIENT
  Age: 90 Year
  Sex: Female

DRUGS (4)
  1. JARDIANCE [Suspect]
     Active Substance: EMPAGLIFLOZIN
     Indication: Dyspnoea
     Route: 048
     Dates: start: 20220922
  2. JARDIANCE [Suspect]
     Active Substance: EMPAGLIFLOZIN
     Indication: Atrial fibrillation
  3. JARDIANCE [Suspect]
     Active Substance: EMPAGLIFLOZIN
     Indication: Mitral valve incompetence
  4. JARDIANCE [Suspect]
     Active Substance: EMPAGLIFLOZIN
     Indication: Brain natriuretic peptide

REACTIONS (4)
  - Decreased appetite [Recovered/Resolved]
  - Pyrexia [Recovered/Resolved]
  - Cholecystitis acute [Recovered/Resolved]
  - Pain [Recovered/Resolved]

NARRATIVE: CASE EVENT DATE: 20230403
